FAERS Safety Report 9525061 (Version 1)
Quarter: 2013Q3

REPORT INFORMATION
  Report Type: Spontaneous
  Country: US (occurrence: None)
  Receive Date: 20130913
  Receipt Date: 20130913
  Transmission Date: 20140515
  Serious: No
  Sender: FDA-Public Use
  Company Number: None

PATIENT
  Age: 73 Year
  Sex: Female
  Weight: 61.24 kg

DRUGS (1)
  1. MEANINGFUL BEAUTY EYE LIFTING CREAM [Suspect]
     Indication: SKIN COSMETIC PROCEDURE
     Dosage: SMALL AMOUNT PEA SIZE 2X DAY 003, 2 DAYS MORNING AND NIGHT

REACTIONS (3)
  - Eye pain [None]
  - Vision blurred [None]
  - Product expiration date issue [None]
